FAERS Safety Report 9426372 (Version 2)
Quarter: 2013Q4

REPORT INFORMATION
  Report Type: Spontaneous
  Country: FI (occurrence: FI)
  Receive Date: 20130730
  Receipt Date: 20131010
  Transmission Date: 20140711
  Serious: Yes (Other)
  Sender: FDA-Public Use
  Company Number: FI-JNJFOC-20130709189

PATIENT
  Sex: Male

DRUGS (1)
  1. NICORETTE [Suspect]
     Indication: SMOKING CESSATION THERAPY
     Route: 065

REACTIONS (8)
  - Panic disorder [Unknown]
  - Anxiety [Unknown]
  - Product packaging issue [Unknown]
  - Feeling abnormal [Unknown]
  - Asthenia [Unknown]
  - Restlessness [Unknown]
  - Abnormal behaviour [Recovering/Resolving]
  - Fatigue [Unknown]
